FAERS Safety Report 9410501 (Version 1)
Quarter: 2013Q3

REPORT INFORMATION
  Report Type: Spontaneous
  Country: ES (occurrence: ES)
  Receive Date: 20130719
  Receipt Date: 20130719
  Transmission Date: 20140515
  Serious: Yes (Hospitalization)
  Sender: FDA-Public Use
  Company Number: ES-AMGEN-ESPSP2013050251

PATIENT
  Age: 64 Year
  Sex: Male

DRUGS (5)
  1. ENBREL [Suspect]
     Indication: PSORIASIS
     Dosage: 50 MG, UNK
     Route: 065
     Dates: start: 20130508
  2. OMEPRAZOLE [Concomitant]
     Dosage: UNK
  3. ALFUZOSIN [Concomitant]
     Dosage: UNK UNK, UNK
  4. HIDROXIZIN [Concomitant]
     Dosage: UNK
  5. SANDIMMUN NEORAL [Concomitant]
     Dosage: UNK UNK, UNK

REACTIONS (3)
  - Skin exfoliation [Recovering/Resolving]
  - Dermatitis exfoliative [Recovering/Resolving]
  - Psoriasis [Recovering/Resolving]
